FAERS Safety Report 4694942-X (Version None)
Quarter: 2005Q2

REPORT INFORMATION
  Report Type: 
  Country: None (occurrence: None)
  Receive Date: 20050617
  Receipt Date: 20050601
  Transmission Date: 20051028
  Serious: Yes (Other)
  Sender: FDA-Public Use
  Company Number: DSA_26597_2005

PATIENT
  Age: 64 Year
  Sex: Female

DRUGS (4)
  1. RENIVACE [Suspect]
     Indication: HYPERTENSION
     Dosage: 5 MG Q DAY PO
     Route: 048
     Dates: start: 20050531, end: 20050531
  2. TAKEPRON [Concomitant]
  3. SPASMEX [Concomitant]
  4. MUCOSTA [Concomitant]

REACTIONS (6)
  - ANGIONEUROTIC OEDEMA [None]
  - BLOOD PRESSURE SYSTOLIC INCREASED [None]
  - COUGH [None]
  - ERYTHEMA [None]
  - NASAL CONGESTION [None]
  - RHINORRHOEA [None]
